FAERS Safety Report 9616888 (Version 1)
Quarter: 2013Q4

REPORT INFORMATION
  Report Type: Spontaneous
  Country: US (occurrence: US)
  Receive Date: 20131011
  Receipt Date: 20131011
  Transmission Date: 20140711
  Serious: Yes (Other)
  Sender: FDA-Public Use
  Company Number: US-PFIZER INC-2013291651

PATIENT
  Sex: Male

DRUGS (7)
  1. LYRICA [Suspect]
     Dosage: 100 MG, 2X/DAY
     Route: 048
  2. LYRICA [Suspect]
     Dosage: 100 MG, 3X/DAY
     Route: 048
  3. LYRICA [Suspect]
     Dosage: 100 MG, UNK
     Route: 048
  4. LYRICA [Suspect]
     Dosage: 200 MG, 2X/DAY
     Route: 048
  5. LYRICA [Suspect]
     Dosage: 100 MG, 2X/DAY
     Route: 048
  6. LYRICA [Suspect]
     Dosage: 100 MG, 1X/DAY
     Route: 048
  7. METHADONE [Concomitant]
     Dosage: UNK

REACTIONS (2)
  - Blindness [Recovering/Resolving]
  - Humerus fracture [Unknown]
